FAERS Safety Report 16175280 (Version 1)
Quarter: 2019Q2

REPORT INFORMATION
  Report Type: Spontaneous
  Country: US (occurrence: US)
  Receive Date: 20190409
  Receipt Date: 20190409
  Transmission Date: 20190711
  Serious: No
  Sender: FDA-Public Use
  Company Number: US-009507513-1903USA012689

PATIENT

DRUGS (1)
  1. ASMANEX [Suspect]
     Active Substance: MOMETASONE FUROATE

REACTIONS (6)
  - Abdominal discomfort [Unknown]
  - Product quality issue [Unknown]
  - Oropharyngeal pain [Unknown]
  - Fatigue [Unknown]
  - Somnolence [Unknown]
  - Product dose omission [Unknown]

NARRATIVE: CASE EVENT DATE: 201903
